FAERS Safety Report 5142583-2 (Version None)
Quarter: 2006Q4

REPORT INFORMATION
  Report Type: 
  Country: None (occurrence: None)
  Receive Date: 20061027
  Receipt Date: 20061013
  Transmission Date: 20070319
  Serious: Yes (Hospitalization)
  Sender: FDA-Public Use
  Company Number: 06US000838

PATIENT
  Age: 14 Year
  Sex: Female
  Weight: 81.6 kg

DRUGS (4)
  1. LITHIUM CARBONATE [Suspect]
     Indication: AFFECTIVE DISORDER
     Dosage: ORAL
     Route: 048
     Dates: start: 19680115
  2. PAMELOR [Concomitant]
  3. STELAZINE [Concomitant]
  4. XANAX [Concomitant]

REACTIONS (12)
  - AFFECTIVE DISORDER [None]
  - AGGRESSION [None]
  - AMNESIA [None]
  - ANGER [None]
  - CONFUSIONAL STATE [None]
  - ILLUSION [None]
  - LOSS OF CONSCIOUSNESS [None]
  - PHYSICAL ABUSE [None]
  - PHYSICAL ASSAULT [None]
  - PYROMANIA [None]
  - SEXUAL ASSAULT VICTIM [None]
  - SEXUAL OFFENCE [None]
